FAERS Safety Report 8073788-9 (Version None)
Quarter: 2012Q1

REPORT INFORMATION
  Report Type: 
  Country: None (occurrence: None)
  Receive Date: 20120126
  Receipt Date: 20120119
  Transmission Date: 20120608
  Serious: Yes (Life-Threatening, Other)
  Sender: FDA-Public Use
  Company Number: JP-PFIZER INC-2011265050

PATIENT
  Age: 79 Year
  Sex: Female
  Weight: 42 kg

DRUGS (19)
  1. LYRICA [Suspect]
     Indication: NEUROPATHY PERIPHERAL
     Dosage: 25 MG, 1X/DAY
     Route: 048
     Dates: start: 20110707, end: 20110713
  2. LYRICA [Suspect]
     Dosage: 75 MG, 2X/DAY
     Route: 048
     Dates: start: 20110728, end: 20110831
  3. PRAVASTATIN SODIUM [Concomitant]
     Dosage: UNK
     Route: 048
  4. MIYA BM [Concomitant]
     Dosage: UNK
     Route: 048
  5. GASCON [Concomitant]
     Dosage: UNK
     Route: 048
  6. MAGNESIUM SULFATE [Concomitant]
     Indication: CONSTIPATION
     Dosage: 1000 MG/DAY
     Route: 048
     Dates: end: 20111017
  7. URSO 250 [Concomitant]
     Indication: LIVER ABSCESS
     Dosage: 300 MG / DAY
     Route: 048
     Dates: start: 20110906
  8. COSPANON [Concomitant]
     Indication: LIVER DISORDER
     Dosage: 120 MG / DAY
     Route: 048
     Dates: start: 20110906
  9. LYRICA [Suspect]
     Dosage: 75 MG, 1X/DAY
     Route: 048
     Dates: start: 20111013, end: 20111016
  10. ZOSYN [Suspect]
     Indication: INFECTION
     Dosage: 4.5 G, 3X/DAY
     Route: 041
     Dates: start: 20110907, end: 20111013
  11. GANATON [Concomitant]
     Dosage: UNK
     Route: 048
  12. DEPAS [Concomitant]
     Indication: INSOMNIA
     Dosage: 0.5 MG/ DAY
     Route: 048
     Dates: end: 20111104
  13. RABEPRAZOLE SODIUM [Concomitant]
     Indication: GASTRIC ULCER
     Dosage: 10 MG / DAY
     Route: 048
     Dates: end: 20111021
  14. LYRICA [Suspect]
     Dosage: 75 MG, 1X/DAY
     Route: 048
     Dates: start: 20110714, end: 20110727
  15. ZOSYN [Suspect]
     Indication: LIVER ABSCESS
  16. CONIEL [Concomitant]
     Dosage: UNK
     Route: 048
  17. METHYCOBAL [Concomitant]
     Indication: NEUROPATHY PERIPHERAL
     Dosage: 1500 MG / DAY
     Route: 048
  18. SUMILU STICK [Concomitant]
     Indication: PAIN
     Dosage: UNK
     Route: 048
  19. OFLOXACIN [Concomitant]
     Dosage: UNK

REACTIONS (1)
  - TUBULOINTERSTITIAL NEPHRITIS [None]
